FAERS Safety Report 8487999-1 (Version None)
Quarter: 2012Q3

REPORT INFORMATION
  Report Type: 
  Country: None (occurrence: None)
  Receive Date: 20120705
  Receipt Date: 20120702
  Transmission Date: 20120928
  Serious: Yes (Death, Hospitalization)
  Sender: FDA-Public Use
  Company Number: PHEH2012US010832

PATIENT
  Sex: Female

DRUGS (7)
  1. LOSARTAN POTASSIUM AND HYDROCHLOROTHIAZIDE [Concomitant]
     Dosage: 1 DF, UNK
     Route: 048
  2. AMLODIPINE [Concomitant]
     Dosage: 20 MG, QD
     Route: 048
  3. PAROXETINE [Concomitant]
     Dosage: 20 MG, QD
     Route: 048
  4. EXELON [Suspect]
     Route: 062
  5. NAMENDA [Concomitant]
     Dosage: 10 MG, BID
  6. LEVOTHYROXINE SODIUM [Concomitant]
     Dosage: 0.125 MG, QD
     Route: 048
  7. WARFARIN SODIUM [Concomitant]
     Route: 048

REACTIONS (3)
  - GASTROINTESTINAL HAEMORRHAGE [None]
  - DEATH [None]
  - PNEUMONIA [None]
